FAERS Safety Report 5752825-8 (Version None)
Quarter: 2008Q2

REPORT INFORMATION
  Report Type: 
  Country: None (occurrence: None)
  Receive Date: 20080529
  Receipt Date: 20080523
  Transmission Date: 20081010
  Serious: Yes (Other)
  Sender: FDA-Public Use
  Company Number: AU-PFIZER INC-2008032430

PATIENT
  Age: 69 Year
  Sex: Female

DRUGS (4)
  1. CADUET [Suspect]
     Indication: HYPERTENSION
     Dosage: TEXT:5/20: 5/20-FREQ:FREQUENCY: OD
     Route: 048
  2. CADUET [Suspect]
     Indication: DYSLIPIDAEMIA
  3. DISPRIN [Concomitant]
     Route: 048
  4. LEVOTHYROXINE SODIUM [Concomitant]
     Route: 048

REACTIONS (2)
  - MUSCULAR WEAKNESS [None]
  - RENAL FAILURE ACUTE [None]
